FAERS Safety Report 15036630 (Version 4)
Quarter: 2019Q4

REPORT INFORMATION
  Report Type: Spontaneous
  Country: US (occurrence: US)
  Receive Date: 20180620
  Receipt Date: 20191030
  Transmission Date: 20200122
  Serious: No
  Sender: FDA-Public Use
  Company Number: US-PFIZER INC-2018247349

PATIENT
  Age: 34 Year
  Sex: Female
  Weight: 57.14 kg

DRUGS (1)
  1. XELJANZ [Suspect]
     Active Substance: TOFACITINIB CITRATE
     Indication: ARTHRITIS
     Dosage: UNK

REACTIONS (7)
  - Drug ineffective [Unknown]
  - Pain [Unknown]
  - Pain in extremity [Unknown]
  - Stress [Unknown]
  - Arthralgia [Unknown]
  - Gait disturbance [Unknown]
  - Joint swelling [Unknown]

NARRATIVE: CASE EVENT DATE: 20191025
